FAERS Safety Report 4887272-4 (Version None)
Quarter: 2005Q4

REPORT INFORMATION
  Report Type: 
  Country: None (occurrence: None)
  Receive Date: 20051220
  Receipt Date: 20050328
  Transmission Date: 20060501
  Serious: Yes (Other)
  Sender: FDA-Public Use
  Company Number: HQWYE767602MAR05

PATIENT
  Age: 34 Year
  Sex: Female
  Weight: 53.12 kg

DRUGS (1)
  1. EFFEXOR XR [Suspect]
     Indication: ANXIETY
     Dosage: 37.5 MG 1X PER 1 DAY, ORAL
     Route: 048
     Dates: start: 20050227

REACTIONS (9)
  - ABNORMAL SENSATION IN EYE [None]
  - ANOREXIA [None]
  - FATIGUE [None]
  - FEELING ABNORMAL [None]
  - HEADACHE [None]
  - IRRITABILITY [None]
  - MYDRIASIS [None]
  - NAUSEA [None]
  - VISION BLURRED [None]
